FAERS Safety Report 8430490 (Version 2)
Quarter: 2012Q4

REPORT INFORMATION
  Report Type: 
  Country: US (occurrence: US)
  Receive Date: 20120228
  Receipt Date: 20121206
  Transmission Date: 20130627
  Serious: Yes (Death)
  Sender: FDA-Public Use
  Company Number: US-PFIZER INC-2012047179

PATIENT
  Age: 69 Year
  Sex: Male

DRUGS (1)
  1. REVATIO [Suspect]
     Indication: PRIMARY PULMONARY HYPERTENSION
     Dosage: 2x20mg, 3x/day
     Dates: start: 20120125

REACTIONS (2)
  - Pulmonary hypertension [Fatal]
  - Off label use [Unknown]
